FAERS Safety Report 16329392 (Version 1)
Quarter: 2019Q2

REPORT INFORMATION
  Report Type: Spontaneous
  Country: FR (occurrence: FR)
  Receive Date: 20190520
  Receipt Date: 20190520
  Transmission Date: 20190711
  Serious: Yes (Hospitalization)
  Sender: FDA-Public Use
  Company Number: FR-ACCORD-128023

PATIENT
  Age: 55 Year
  Sex: Female

DRUGS (3)
  1. FLUOROURACIL ACCORD [Suspect]
     Active Substance: FLUOROURACIL
     Indication: GASTRIC CANCER
     Dosage: STRENGTH:  50 MG/ ML
     Route: 042
     Dates: start: 20190318, end: 20190318
  2. DOCETAXEL ACCORD [Suspect]
     Active Substance: DOCETAXEL
     Indication: GASTRIC CANCER
     Route: 042
     Dates: start: 20190318, end: 20190318
  3. OXALIPLATIN ACCORD [Suspect]
     Active Substance: OXALIPLATIN
     Indication: GASTRIC CANCER
     Dosage: STRENGTH: 5 MG/ML
     Route: 042
     Dates: start: 20190318, end: 20190318

REACTIONS (8)
  - Dysarthria [Recovering/Resolving]
  - Nausea [Recovering/Resolving]
  - Vision blurred [Recovering/Resolving]
  - Vertigo [Recovering/Resolving]
  - Muscle spasms [Recovering/Resolving]
  - Off label use [Unknown]
  - Tremor [Recovered/Resolved]
  - Headache [Recovering/Resolving]

NARRATIVE: CASE EVENT DATE: 20190318
